FAERS Safety Report 6001980-3 (Version None)
Quarter: 2008Q4

REPORT INFORMATION
  Report Type: 
  Country: None (occurrence: None)
  Receive Date: 20081212
  Receipt Date: 20081203
  Transmission Date: 20090506
  Serious: Yes (Hospitalization)
  Sender: FDA-Public Use
  Company Number: 2008SP020880

PATIENT
  Age: 27 Year
  Sex: Male
  Weight: 73.6 kg

DRUGS (13)
  1. TEMOZOLOMIDE [Suspect]
     Indication: LYMPHOMA
     Dosage: 100 MG/M2; QD; PO; 100 MG/2, QD, PO; 180 MG; QD; PO
     Route: 048
     Dates: start: 20080605, end: 20080605
  2. TEMOZOLOMIDE [Suspect]
     Indication: LYMPHOMA
     Dosage: 100 MG/M2; QD; PO; 100 MG/2, QD, PO; 180 MG; QD; PO
     Route: 048
     Dates: start: 20080611, end: 20080614
  3. TEMOZOLOMIDE [Suspect]
     Indication: LYMPHOMA
     Dosage: 100 MG/M2; QD; PO; 100 MG/2, QD, PO; 180 MG; QD; PO
     Route: 048
     Dates: start: 20080714, end: 20080718
  4. METHOTREXATE [Suspect]
     Indication: LYMPHOMA
     Dosage: QOW; IV; QOW; IV; IV; 6 GM; 6GM
     Route: 042
     Dates: start: 20080528, end: 20080528
  5. METHOTREXATE [Suspect]
     Indication: LYMPHOMA
     Dosage: QOW; IV; QOW; IV; IV; 6 GM; 6GM
     Route: 042
     Dates: start: 20080621, end: 20080621
  6. METHOTREXATE [Suspect]
     Indication: LYMPHOMA
     Dosage: QOW; IV; QOW; IV; IV; 6 GM; 6GM
     Route: 042
     Dates: start: 20080621
  7. METHOTREXATE [Suspect]
     Indication: LYMPHOMA
     Dosage: QOW; IV; QOW; IV; IV; 6 GM; 6GM
     Route: 042
     Dates: start: 20080705
  8. RITUXIMAB [Suspect]
     Indication: LYMPHOMA
     Dosage: 375 MG/M2
     Dates: start: 20080507, end: 20080507
  9. DILAUDID [Suspect]
     Indication: PAIN
     Dosage: 4 MG; PRN
  10. VANCOMYCIN [Suspect]
     Indication: INFECTION
     Dosage: IV
     Route: 042
  11. PHENERGAN HCL [Suspect]
     Indication: NAUSEA
     Dosage: 25 MG; PRN; PO
     Route: 048
  12. XANAX [Suspect]
     Indication: DRUG USE FOR UNKNOWN INDICATION
     Dosage: 0.25 MG; BID; PO
     Route: 048
  13. NOVOLOG [Suspect]
     Indication: DIABETES MELLITUS
     Dosage: 10 IU; 14 IU

REACTIONS (26)
  - BLOOD ALBUMIN DECREASED [None]
  - BLOOD CALCIUM DECREASED [None]
  - BLOOD GLUCOSE INCREASED [None]
  - BLOOD POTASSIUM DECREASED [None]
  - BLOOD UREA DECREASED [None]
  - COLITIS [None]
  - CSF GLUCOSE DECREASED [None]
  - CSF PROTEIN INCREASED [None]
  - CSF WHITE BLOOD CELL COUNT POSITIVE [None]
  - DEHYDRATION [None]
  - DISEASE PROGRESSION [None]
  - DRUG DEPENDENCE [None]
  - DYSPNOEA [None]
  - FEBRILE NEUTROPENIA [None]
  - HAEMATOCRIT DECREASED [None]
  - HAEMOGLOBIN DECREASED [None]
  - HEADACHE [None]
  - HYDROCEPHALUS [None]
  - HYPERTENSION [None]
  - INFECTION [None]
  - LUNG INFILTRATION [None]
  - NAUSEA [None]
  - NUCLEAR MAGNETIC RESONANCE IMAGING BRAIN ABNORMAL [None]
  - PYREXIA [None]
  - VOMITING [None]
  - WITHDRAWAL SYNDROME [None]
